FAERS Safety Report 24748391 (Version 1)
Quarter: 2024Q4

REPORT INFORMATION
  Report Type: Spontaneous
  Country: US (occurrence: US)
  Receive Date: 20241218
  Receipt Date: 20241218
  Transmission Date: 20250114
  Serious: No
  Sender: TOLMAR
  Company Number: US-TOLMAR, INC.-24US054264

PATIENT
  Age: 58 Year
  Sex: Male

DRUGS (1)
  1. ELIGARD [Suspect]
     Active Substance: LEUPROLIDE ACETATE
     Indication: Bladder cancer
     Dosage: 22.5 MILLIGRAM, Q 3 MONTH
     Route: 058

REACTIONS (1)
  - Off label use [Unknown]

NARRATIVE: CASE EVENT DATE: 20241120
